FAERS Safety Report 7639335-8 (Version None)
Quarter: 2011Q3

REPORT INFORMATION
  Report Type: 
  Country: None (occurrence: None)
  Receive Date: 20110727
  Receipt Date: 20110719
  Transmission Date: 20111222
  Serious: Yes (Other)
  Sender: FDA-Public Use
  Company Number: PHHY2011ZA66785

PATIENT
  Age: 16 Year
  Sex: Male

DRUGS (6)
  1. HALOPERIDOL [Suspect]
     Indication: SCHIZOPHRENIA
     Dosage: 5 MG, BID
  2. ALCOHOL [Suspect]
  3. ZUCLOPENTHIXOL ACETATE [Suspect]
     Indication: BIPOLAR DISORDER
     Dosage: 50 MG, TWICE
     Route: 030
  4. LORAZEPAM [Suspect]
     Indication: SCHIZOPHRENIA
     Dosage: 10 MG, TWICE
     Route: 030
  5. CANNABIS [Suspect]
  6. METHAMPHETAMINE HYDROCHLORIDE [Suspect]

REACTIONS (5)
  - NEUROLEPTIC MALIGNANT SYNDROME [None]
  - AGITATION [None]
  - DYSPHAGIA [None]
  - MUSCLE RIGIDITY [None]
  - BODY TEMPERATURE INCREASED [None]
